FAERS Safety Report 24997388 (Version 1)
Quarter: 2025Q1

REPORT INFORMATION
  Report Type: Spontaneous
  Country: US (occurrence: US)
  Receive Date: 20250222
  Receipt Date: 20250222
  Transmission Date: 20250408
  Serious: Yes (Death, Other)
  Sender: ACCORD
  Company Number: US-Accord-469905

PATIENT
  Age: 74 Year
  Sex: Male

DRUGS (15)
  1. METOPROLOL [Suspect]
     Active Substance: METOPROLOL
     Indication: Product used for unknown indication
  2. MIFEPRISTONE [Suspect]
     Active Substance: MIFEPRISTONE
     Indication: Cushing^s syndrome
     Route: 048
     Dates: start: 20241218, end: 20250128
  3. VALSARTAN AND HYDROCHLOROTHIAZIDE [Suspect]
     Active Substance: HYDROCHLOROTHIAZIDE\VALSARTAN
     Indication: Product used for unknown indication
  4. LOSARTAN AND HYDROCHLOROTHIAZIDE [Suspect]
     Active Substance: HYDROCHLOROTHIAZIDE\LOSARTAN POTASSIUM
     Indication: Product used for unknown indication
  5. ALLOPURINOL [Concomitant]
     Active Substance: ALLOPURINOL
  6. FUROSEMIDE [Concomitant]
     Active Substance: FUROSEMIDE
  7. AMIODARONE [Concomitant]
     Active Substance: AMIODARONE
  8. CITALOPRAM [Concomitant]
     Active Substance: CITALOPRAM
  9. MAGNESIUM [Concomitant]
     Active Substance: MAGNESIUM
  10. NOVOLIN R [Concomitant]
     Active Substance: INSULIN HUMAN
  11. PRAVASTATIN [Concomitant]
     Active Substance: PRAVASTATIN
  12. SOTALOL [Concomitant]
     Active Substance: SOTALOL
  13. VITAMIN C [Concomitant]
     Active Substance: ASCORBIC ACID
  14. TADALAFIL [Concomitant]
     Active Substance: TADALAFIL
  15. INSULIN GLARGINE [Concomitant]
     Active Substance: INSULIN GLARGINE

REACTIONS (11)
  - Atrial fibrillation [Fatal]
  - Myocardial infarction [Fatal]
  - Irregular sleep wake rhythm disorder [Not Recovered/Not Resolved]
  - Abnormal dreams [Not Recovered/Not Resolved]
  - Restlessness [Not Recovered/Not Resolved]
  - Dizziness [Not Recovered/Not Resolved]
  - Blood pressure systolic decreased [Not Recovered/Not Resolved]
  - Hypersomnia [Not Recovered/Not Resolved]
  - Muscular weakness [Not Recovered/Not Resolved]
  - Abdominal discomfort [Not Recovered/Not Resolved]
  - Decreased appetite [Not Recovered/Not Resolved]

NARRATIVE: CASE EVENT DATE: 20241201
